FAERS Safety Report 18977420 (Version 1)
Quarter: 2021Q1

REPORT INFORMATION
  Report Type: Other
  Country: US (occurrence: US)
  Receive Date: 20210306
  Receipt Date: 20210306
  Transmission Date: 20210420
  Serious: Yes (Death, Other)
  Sender: FDA-Public Use
  Company Number: US-ROCHE-2779442

PATIENT
  Age: 52 Year
  Sex: Male

DRUGS (1)
  1. ACTILYSE [Suspect]
     Active Substance: ALTEPLASE
     Indication: PULMONARY EMBOLISM
     Route: 042

REACTIONS (3)
  - Acute myocardial infarction [Fatal]
  - Retroperitoneal haemorrhage [Fatal]
  - Shock haemorrhagic [Unknown]
